FAERS Safety Report 14330075 (Version 3)
Quarter: 2020Q4

REPORT INFORMATION
  Report Type: Report from Study
  Country: DE (occurrence: DE)
  Receive Date: 20171227
  Receipt Date: 20201118
  Transmission Date: 20210113
  Serious: Yes (Hospitalization)
  Sender: FDA-Public Use
  Company Number: DE-TEVA-2017-DE-837305

PATIENT
  Age: 68 Year
  Sex: Male
  Weight: 70 kg

DRUGS (9)
  1. CETUXIMAB. [Suspect]
     Active Substance: CETUXIMAB
     Indication: COLORECTAL CANCER METASTATIC
     Route: 065
  2. 5-FLUOROURACIL [Suspect]
     Active Substance: FLUOROURACIL
     Dosage: DAILY DOSE: 4344 MG MILLGRAM(S) EVERY 2 WEEKS
     Route: 041
     Dates: start: 20140812, end: 20141205
  3. 5-FLUOROURACIL [Suspect]
     Active Substance: FLUOROURACIL
     Indication: COLORECTAL CANCER METASTATIC
     Dosage: DAILY DOSE: 724 MG MILLGRAM(S) EVERY 2 WEEKS
     Route: 040
     Dates: start: 20140812, end: 20141222
  4. SALBUTAMOL [Concomitant]
     Active Substance: ALBUTEROL
     Indication: LUNG DISORDER
     Route: 048
  5. FOLINIC ACID [Concomitant]
     Active Substance: LEUCOVORIN
     Indication: COLORECTAL CANCER METASTATIC
     Dosage: 721-724 MG
     Route: 042
     Dates: start: 20140812, end: 20141222
  6. SPIRIVA [Concomitant]
     Active Substance: TIOTROPIUM BROMIDE MONOHYDRATE
     Indication: LUNG DISORDER
     Dosage: 18 MICROGRAM DAILY;
     Route: 048
  7. BEVACIZUMAB. [Suspect]
     Active Substance: BEVACIZUMAB
     Indication: COLORECTAL CANCER METASTATIC
     Dosage: FORTNIGHTLY DATE OF LAST DOSE PRIOR TO SAE : 22-DEC-2014
     Route: 042
     Dates: start: 20140812
  8. 5-FLUOROURACIL [Suspect]
     Active Substance: FLUOROURACIL
     Dosage: DAILY DOSE: 2500 MG MILLGRAM(S) EVERY 2 WEEKS
     Route: 041
     Dates: start: 20141222, end: 20141225
  9. IRINOTECAN [Concomitant]
     Active Substance: IRINOTECAN
     Indication: COLORECTAL CANCER METASTATIC
     Dosage: DAILY DOSE: 325.8 MG MILLGRAM(S) EVERY 3 WEEKS
     Route: 042
     Dates: start: 20140812, end: 20141203

REACTIONS (4)
  - Constipation [Recovered/Resolved]
  - Drug hypersensitivity [Recovered/Resolved]
  - Diarrhoea [Recovering/Resolving]
  - Off label use [Unknown]

NARRATIVE: CASE EVENT DATE: 20140816
